FAERS Safety Report 8072476-2 (Version None)
Quarter: 2012Q1

REPORT INFORMATION
  Report Type: 
  Country: None (occurrence: None)
  Receive Date: 20120126
  Receipt Date: 20120119
  Transmission Date: 20120608
  Serious: Yes (Hospitalization)
  Sender: FDA-Public Use
  Company Number: FR-PFIZER INC-2011281451

PATIENT
  Age: 80 Year
  Sex: Male

DRUGS (13)
  1. ASPIRIN [Concomitant]
     Indication: INFARCTION
     Dosage: 75 MG, UNK
     Route: 048
     Dates: start: 20110919
  2. PROCORALAN [Concomitant]
     Dosage: 5 MG, UNK
  3. ATORVASTATIN [Suspect]
     Indication: INFARCTION
     Dosage: 40 MG, UNK
     Route: 048
     Dates: start: 20110919, end: 20111014
  4. INSPRA [Concomitant]
     Dosage: 25 MG, UNK
  5. BISOPROLOL [Concomitant]
     Dosage: 1.25 MG, UNK
  6. ALFUZOSIN HCL [Concomitant]
     Dosage: 10 MG, UNK
     Route: 048
     Dates: start: 20111004
  7. NEXIUM [Concomitant]
     Dosage: 40 MG, UNK
  8. LASIX [Concomitant]
     Dosage: 40 MG, UNK
  9. ATORVASTATIN [Suspect]
     Dosage: 40 MG, UNK
     Route: 048
     Dates: start: 20111020, end: 20111024
  10. ZOLPIDEM [Concomitant]
     Dosage: 10 MG, UNK
     Route: 048
     Dates: start: 20110930
  11. PLAVIX [Concomitant]
     Indication: INFARCTION
     Dosage: 75 MG, UNK
     Route: 048
     Dates: start: 20110919
  12. RAMIPRIL [Concomitant]
     Dosage: 1.25 MG, UNK
     Route: 048
     Dates: start: 20111004
  13. REOPRO [Concomitant]

REACTIONS (1)
  - THROMBOCYTOPENIA [None]
